FAERS Safety Report 16050976 (Version 3)
Quarter: 2019Q2

REPORT INFORMATION
  Report Type: Spontaneous
  Country: US (occurrence: US)
  Receive Date: 20190308
  Receipt Date: 20190613
  Transmission Date: 20190711
  Serious: No
  Sender: FDA-Public Use
  Company Number: US-PFIZER INC-2019099392

PATIENT
  Age: 53 Year
  Sex: Female

DRUGS (3)
  1. SOMAVERT [Suspect]
     Active Substance: PEGVISOMANT
     Dosage: 10 MG, DAILY
     Route: 058
     Dates: start: 20190222
  2. SANDOSTATIN [Concomitant]
     Active Substance: OCTREOTIDE ACETATE
     Dosage: UNK
     Dates: start: 2004
  3. SOMAVERT [Suspect]
     Active Substance: PEGVISOMANT
     Indication: ACROMEGALY
     Dosage: 10 MG, DAILY
     Route: 058
     Dates: start: 20190122

REACTIONS (7)
  - Condition aggravated [Unknown]
  - Headache [Unknown]
  - Muscle spasms [Unknown]
  - Allergic sinusitis [Unknown]
  - Fatigue [Unknown]
  - Sleep disorder [Unknown]
  - Fat tissue increased [Unknown]

NARRATIVE: CASE EVENT DATE: 2019
